FAERS Safety Report 12188473 (Version 2)
Quarter: 2016Q1

REPORT INFORMATION
  Report Type: Report from Study
  Country: RO (occurrence: RO)
  Receive Date: 20160317
  Receipt Date: 20160324
  Transmission Date: 20160526
  Serious: Yes (Life-Threatening, Hospitalization, Other)
  Sender: FDA-Public Use
  Company Number: RO-ABBVIE-16P-135-1581406-00

PATIENT
  Age: 64 Year
  Sex: Male
  Weight: 90 kg

DRUGS (8)
  1. EXVIERA [Suspect]
     Active Substance: DASABUVIR
     Indication: HEPATITIS C
  2. RIBAVIRIN. [Suspect]
     Active Substance: RIBAVIRIN
     Indication: HEPATITIS C
  3. RIBAVIRIN. [Suspect]
     Active Substance: RIBAVIRIN
     Indication: HEPATIC CIRRHOSIS
     Route: 048
     Dates: start: 20160209
  4. INSULIN [Concomitant]
     Active Substance: INSULIN NOS
     Indication: TYPE 2 DIABETES MELLITUS
     Dosage: 34 UNITS RI-RAPID INSULIN, 28RI-28RI; 30 UNITS BASAL INSULIN 0-40BI
     Route: 058
     Dates: start: 1993
  5. VIEKIRAX [Suspect]
     Active Substance: OMBITASVIR\PARITAPREVIR\RITONAVIR
     Indication: HEPATIC CIRRHOSIS
     Dosage: 2-0-0
     Route: 048
     Dates: start: 20160209, end: 20160309
  6. VIEKIRAX [Suspect]
     Active Substance: OMBITASVIR\PARITAPREVIR\RITONAVIR
     Indication: HEPATITIS C
  7. EXVIERA [Suspect]
     Active Substance: DASABUVIR
     Indication: HEPATIC CIRRHOSIS
     Dosage: 1-0-1
     Route: 048
     Dates: start: 20160209, end: 20160309
  8. THIOSSEN [Concomitant]
     Indication: DIABETIC NEUROPATHY
     Dosage: 0-0-1
     Route: 048

REACTIONS (7)
  - Melaena [Unknown]
  - Hepatic failure [Unknown]
  - Hepatic encephalopathy [Recovering/Resolving]
  - Oesophageal varices haemorrhage [Unknown]
  - Anaemia [Unknown]
  - Upper gastrointestinal haemorrhage [Recovering/Resolving]
  - Haematemesis [Not Recovered/Not Resolved]

NARRATIVE: CASE EVENT DATE: 201603
